FAERS Safety Report 7672422-7 (Version None)
Quarter: 2011Q3

REPORT INFORMATION
  Report Type: 
  Country: None (occurrence: None)
  Receive Date: 20110809
  Receipt Date: 20110801
  Transmission Date: 20111222
  Serious: Yes (Other)
  Sender: FDA-Public Use
  Company Number: US-MERCK-1108USA00201

PATIENT
  Age: 64 Year
  Sex: Female

DRUGS (2)
  1. TRUSOPT [Suspect]
     Indication: GLAUCOMA
     Route: 047
     Dates: start: 20060701
  2. LUMIGAN [Concomitant]
     Route: 065

REACTIONS (4)
  - BLINDNESS [None]
  - PHOTOPHOBIA [None]
  - OCULAR HYPERAEMIA [None]
  - EYE IRRITATION [None]
